FAERS Safety Report 9260848 (Version 3)
Quarter: 2013Q3

REPORT INFORMATION
  Report Type: Report from Study
  Country: AT (occurrence: AT)
  Receive Date: 20130429
  Receipt Date: 20130821
  Transmission Date: 20140515
  Serious: Yes (Life-Threatening, Hospitalization)
  Sender: FDA-Public Use
  Company Number: AT-PFIZER INC-2012308770

PATIENT
  Age: 69 Year
  Sex: Female
  Weight: 68 kg

DRUGS (6)
  1. GEMTUZUMAB OZOGAMICIN [Suspect]
     Indication: ACUTE MYELOID LEUKAEMIA
     Dosage: 3 MG/M2, 1X/DAY (5.34 MG)
     Dates: start: 20121120
  2. IDARUBICIN HCL [Suspect]
     Indication: ACUTE MYELOID LEUKAEMIA
     Dosage: 12 MG/M2, 1X/DAY (21.36 MG)
     Dates: start: 20121120
  3. PEGFILGRASTIM [Suspect]
     Indication: ACUTE MYELOID LEUKAEMIA
     Dosage: 6 MG, 1X/DAY
     Dates: start: 20121204
  4. ATRA [Suspect]
     Indication: ACUTE MYELOID LEUKAEMIA
     Dosage: 60/30 MG, DAILY
     Dates: start: 20121125
  5. ETOPOSIDE [Suspect]
     Indication: ACUTE MYELOID LEUKAEMIA
     Dosage: 100 MG/M2, 1X/DAY (178 MG)
     Dates: start: 20121120
  6. CYTARABINE [Suspect]
     Indication: ACUTE MYELOID LEUKAEMIA
     Dosage: 100 MG/M2, 1X/DAY (178 MG)
     Dates: start: 20121120

REACTIONS (1)
  - Upper gastrointestinal haemorrhage [Recovered/Resolved]
